FAERS Safety Report 8918258 (Version 2)
Quarter: 2013Q1

REPORT INFORMATION
  Report Type: Spontaneous
  Country: US (occurrence: US)
  Receive Date: 20121120
  Receipt Date: 20130128
  Transmission Date: 20140127
  Serious: No
  Sender: FDA-Public Use
  Company Number: US-009507513-1211USA006592

PATIENT
  Age: 17 Year
  Sex: Female
  Weight: 79.37 kg

DRUGS (2)
  1. NUVARING [Suspect]
     Indication: CONTRACEPTION
     Dosage: 1 RING FOR 3 WEEKS FOLLOWED BY A WEEK FREE BREAK
     Route: 067
     Dates: start: 201208
  2. AMOXICILLIN [Concomitant]

REACTIONS (4)
  - Vulvovaginal pruritus [Unknown]
  - Fungal infection [Unknown]
  - Vaginal discharge [Unknown]
  - Incorrect drug administration duration [Unknown]
